FAERS Safety Report 17206848 (Version 1)
Quarter: 2019Q4

REPORT INFORMATION
  Report Type: Spontaneous
  Country: RU (occurrence: RU)
  Receive Date: 20191227
  Receipt Date: 20191227
  Transmission Date: 20200122
  Serious: Yes (Hospitalization, Other)
  Sender: FDA-Public Use
  Company Number: RU-TEVA-2019-RU-1159167

PATIENT
  Age: 37 Year
  Sex: Female

DRUGS (5)
  1. D-PENICILLAMINE [Suspect]
     Active Substance: PENICILLAMINE
     Indication: HEPATO-LENTICULAR DEGENERATION
     Dosage: 750 MILLIGRAM DAILY;
     Route: 065
  2. CYCLOPHOSPHAMIDE. [Suspect]
     Active Substance: CYCLOPHOSPHAMIDE
     Indication: AUTOIMMUNE DISORDER
     Route: 065
  3. MTHYLPREDNISOLONE [Concomitant]
     Indication: IMMUNOSUPPRESSION
     Dosage: 750 MILLIGRAM DAILY; THREE PULSES DAILY
     Route: 065
  4. MTHYLPREDNISOLONE [Concomitant]
     Indication: IMMUNOSUPPRESSION
     Route: 048
  5. ZINC SULFATE. [Concomitant]
     Active Substance: ZINC SULFATE
     Indication: HEPATO-LENTICULAR DEGENERATION
     Route: 065

REACTIONS (8)
  - Glomerulonephritis rapidly progressive [Recovering/Resolving]
  - Microscopic polyangiitis [Recovering/Resolving]
  - Leukopenia [Recovered/Resolved]
  - Thrombocytopenia [Recovered/Resolved]
  - Haemorrhage [Recovering/Resolving]
  - Renal failure [Not Recovered/Not Resolved]
  - Anaemia [Recovering/Resolving]
  - Pneumonia [Recovered/Resolved]
